FAERS Safety Report 6025087-4 (Version None)
Quarter: 2008Q4

REPORT INFORMATION
  Report Type: 
  Country: None (occurrence: None)
  Receive Date: 20081231
  Receipt Date: 20081222
  Transmission Date: 20090506
  Serious: Yes (Hospitalization)
  Sender: FDA-Public Use
  Company Number: GB-AMGEN-US325081

PATIENT
  Sex: Male
  Weight: 19.1 kg

DRUGS (8)
  1. ENBREL [Suspect]
     Indication: RHEUMATOID ARTHRITIS
     Route: 058
     Dates: start: 20010701
  2. METHOTREXATE [Concomitant]
     Dosage: UNKNOWN
     Dates: end: 20060401
  3. CORTICOSTEROID NOS [Concomitant]
     Dosage: 5MG, FREQUENCY UNSPECIFIED
     Route: 048
     Dates: start: 19980301
  4. SYTRON [Concomitant]
     Route: 048
     Dates: start: 19980701
  5. FOLIC ACID [Concomitant]
     Route: 048
     Dates: start: 19980701
  6. ABDEC [Concomitant]
     Route: 048
     Dates: start: 19980701
  7. PARACETAMOL [Concomitant]
     Dosage: 350MG, PRN
     Route: 048
     Dates: start: 20060401
  8. OMEPRAZOLE [Concomitant]
     Route: 048
     Dates: start: 20020401

REACTIONS (2)
  - ARNOLD-CHIARI MALFORMATION [None]
  - CONDITION AGGRAVATED [None]
